FAERS Safety Report 4327873-5 (Version None)
Quarter: 2004Q1

REPORT INFORMATION
  Report Type: 
  Country: None (occurrence: None)
  Receive Date: 20040325
  Receipt Date: 20040309
  Transmission Date: 20041129
  Serious: Yes (Death)
  Sender: FDA-Public Use
  Company Number: AU-JNJFOC-20040304303

PATIENT
  Age: 81 Year
  Sex: Male

DRUGS (5)
  1. TRAMADOL HCL [Suspect]
     Indication: ABDOMINAL PAIN
     Dosage: 50 MG, 1 IN 1 NECESSARY, ORAL
     Route: 048
     Dates: end: 20030125
  2. MACRODANTIN [Suspect]
     Indication: URINARY TRACT DISORDER
     Dosage: 100 MG, IN 1 DAY, ORAL
     Route: 048
     Dates: end: 20030203
  3. LASIX [Suspect]
     Dosage: 80 MG, IN 1 DAY, ORAL
     Route: 048
     Dates: end: 20030125
  4. AVANZA (MIRTAZAPINE) UNKNOWN [Suspect]
     Indication: DEPRESSION
     Dosage: 45 MG, IN 1 DAY, ORAL
     Route: 048
     Dates: end: 20030125
  5. TEMAZ [Suspect]
     Indication: SLEEP DISORDER
     Dosage: 100 MG, IN 1 DAY
     Dates: end: 20030125

REACTIONS (2)
  - HEPATIC FAILURE [None]
  - PULMONARY HYPERTENSION [None]
